FAERS Safety Report 19933688 (Version 1)
Quarter: 2021Q4

REPORT INFORMATION
  Report Type: Spontaneous
  Country: ES (occurrence: ES)
  Receive Date: 20211008
  Receipt Date: 20211008
  Transmission Date: 20220303
  Serious: Yes (Hospitalization, Other)
  Sender: FDA-Public Use
  Company Number: None

PATIENT
  Age: 15 Year
  Sex: Male

DRUGS (1)
  1. IBUPROFEN [Suspect]
     Active Substance: IBUPROFEN
     Indication: Pain
     Dosage: 4 DOSAGE FORM (4 TABLET)
     Route: 048
     Dates: start: 20200518, end: 20200520

REACTIONS (1)
  - Tubulointerstitial nephritis [Recovered/Resolved]

NARRATIVE: CASE EVENT DATE: 20200520
